FAERS Safety Report 19235927 (Version 1)
Quarter: 2021Q2

REPORT INFORMATION
  Report Type: Spontaneous
  Country: US (occurrence: US)
  Receive Date: 20210510
  Receipt Date: 20210510
  Transmission Date: 20210717
  Serious: No
  Sender: FDA-Public Use
  Company Number: US-TEVA-2021-US-1906623

PATIENT
  Sex: Female

DRUGS (1)
  1. DEXTROAMPHET SACCHARAT, AMPHET ASPARTATE, DEXTROAMPHET SULFATE AND AMPHET SULFAT [Suspect]
     Active Substance: AMPHETAMINE ASPARTATE\AMPHETAMINE SULFATE\DEXTROAMPHETAMINE SACCHARATE\DEXTROAMPHETAMINE SULFATE
     Route: 065

REACTIONS (11)
  - Product size issue [Unknown]
  - Headache [Unknown]
  - Abdominal discomfort [Unknown]
  - Eye irritation [Unknown]
  - Product colour issue [Unknown]
  - Depressed mood [Unknown]
  - Product taste abnormal [Unknown]
  - Irritability [Unknown]
  - Feeling abnormal [Unknown]
  - Product physical issue [Unknown]
  - Dyspepsia [Unknown]
